FAERS Safety Report 24640455 (Version 1)
Quarter: 2024Q4

REPORT INFORMATION
  Report Type: Spontaneous
  Country: US (occurrence: US)
  Receive Date: 20241120
  Receipt Date: 20241120
  Transmission Date: 20250115
  Serious: Yes (Other)
  Sender: TEVA
  Company Number: US-TEVA-VS-3264075

PATIENT
  Age: 59 Year
  Sex: Male

DRUGS (1)
  1. CARBIDOPA AND LEVODOPA [Suspect]
     Active Substance: CARBIDOPA\LEVODOPA
     Indication: Parkinson^s disease
     Dosage: FORM STRENGTH: 25MG/100MG, 2 PILLS AT AN UNKNOWN FREQUENCY
     Route: 065
     Dates: start: 2024

REACTIONS (4)
  - Impaired driving ability [Unknown]
  - Gait inability [Unknown]
  - Musculoskeletal stiffness [Unknown]
  - Catatonia [Unknown]

NARRATIVE: CASE EVENT DATE: 20240101
